FAERS Safety Report 4395974-1 (Version None)
Quarter: 2004Q3

REPORT INFORMATION
  Report Type: 
  Country: None (occurrence: None)
  Receive Date: 20040707
  Receipt Date: 20040625
  Transmission Date: 20050211
  Serious: Yes (Hospitalization)
  Sender: FDA-Public Use
  Company Number: 04P-066-0264943-00

PATIENT
  Age: 42 Year
  Sex: Female

DRUGS (2)
  1. MERIDIA [Suspect]
     Indication: OBESITY
     Dosage: 10 MG, 1 IN 1 D, PER ORAL
     Route: 048
  2. ISOTRETINOIN [Suspect]
     Indication: ACNE

REACTIONS (10)
  - ABDOMINAL PAIN [None]
  - ANAEMIA [None]
  - CULTURE URINE POSITIVE [None]
  - DRUG INTERACTION [None]
  - GLOMERULONEPHRITIS [None]
  - HAEMODIALYSIS [None]
  - POST STREPTOCOCCAL GLOMERULONEPHRITIS [None]
  - REFUSAL OF TREATMENT BY PATIENT [None]
  - RENAL FAILURE ACUTE [None]
  - STREPTOCOCCAL INFECTION [None]
